FAERS Safety Report 20393988 (Version 1)
Quarter: 2022Q1

REPORT INFORMATION
  Report Type: Spontaneous
  Country: DE (occurrence: DE)
  Receive Date: 20220129
  Receipt Date: 20220129
  Transmission Date: 20220424
  Serious: Yes (Hospitalization)
  Sender: FDA-Public Use
  Company Number: None

PATIENT
  Age: 72 Year
  Sex: Male
  Weight: 72 kg

DRUGS (6)
  1. CARBOPLATIN [Suspect]
     Active Substance: CARBOPLATIN
     Indication: Product used for unknown indication
  2. ETOPOSIDE [Suspect]
     Active Substance: ETOPOSIDE
     Indication: Product used for unknown indication
  3. TIMOLOL [Concomitant]
     Active Substance: TIMOLOL
     Dosage: 1.25MG/0.5ML, 1-0-1-0, SINGLE DOSE PIPETTES
     Route: 047
  4. METAMIZOLE [Concomitant]
     Active Substance: METAMIZOLE
     Dosage: 500MG/ML, 20-20-20-20, DROPS
     Route: 048
  5. Aclidinium Bromide, Formoterol Fumarate [Concomitant]
     Dosage: 400/12 MICROGRAM, 1-0-1-0, INHALATION POWDER
     Route: 055
  6. PILOCARPINE [Concomitant]
     Active Substance: PILOCARPINE
     Dosage: 20 MG/G, 1-1-1-0, DROPS
     Route: 047

REACTIONS (2)
  - Pain [Unknown]
  - Administration site discomfort [Unknown]
